FAERS Safety Report 9442861 (Version 2)
Quarter: 2014Q2

REPORT INFORMATION
  Report Type: Spontaneous
  Country: BR (occurrence: BR)
  Receive Date: 20130806
  Receipt Date: 20140410
  Transmission Date: 20141212
  Serious: Yes (Other)
  Sender: FDA-Public Use
  Company Number: BR-PFIZER INC-2013227473

PATIENT
  Age: 61 Year
  Sex: Female
  Weight: 76 kg

DRUGS (3)
  1. DETRUSITOL LA [Suspect]
     Indication: BLADDER IRRITATION
     Dosage: 1 CAPSULE (4 MG) A DAY
     Route: 048
     Dates: start: 20040724
  2. FRONTAL [Concomitant]
     Indication: INFARCTION
     Dosage: ^1.5^ (UNSPECIFIED UNIT) A DAY
     Route: 048
     Dates: start: 200009
  3. ALDACTONE [Concomitant]
     Indication: CARDIAC DISORDER
     Dosage: 1 UNIT (UNSPECIFIED DOSE) A DAY
     Dates: start: 20000724

REACTIONS (1)
  - Bladder disorder [Unknown]
